FAERS Safety Report 18990223 (Version 1)
Quarter: 2021Q1

REPORT INFORMATION
  Report Type: Spontaneous
  Country: GB (occurrence: GB)
  Receive Date: 20210310
  Receipt Date: 20210310
  Transmission Date: 20210420
  Serious: Yes (Hospitalization)
  Sender: FDA-Public Use
  Company Number: GB-NOVOPROD-792606

PATIENT
  Age: 14 Year
  Sex: Male

DRUGS (1)
  1. NOVORAPID [Suspect]
     Active Substance: INSULIN ASPART
     Indication: DIABETES MELLITUS
     Dosage: UNK
     Route: 058

REACTIONS (4)
  - Diabetic ketoacidosis [Unknown]
  - Product leakage [Unknown]
  - Hyperglycaemia [Unknown]
  - Product leakage [Unknown]

NARRATIVE: CASE EVENT DATE: 20210225
